FAERS Safety Report 16597053 (Version 1)
Quarter: 2019Q3

REPORT INFORMATION
  Report Type: Spontaneous
  Country: US (occurrence: US)
  Receive Date: 20190605
  Receipt Date: 20190605
  Transmission Date: 20191004
  Serious: Yes (Other)
  Sender: FDA-Public Use
  Company Number: None

PATIENT

DRUGS (2)
  1. SERTRALINE HCL 50MG TABLET [Suspect]
     Active Substance: SERTRALINE HYDROCHLORIDE
     Indication: ANXIETY
     Dosage: ?          OTHER FREQUENCY:ONCE A DAY NEAR BE;?
     Route: 048
     Dates: start: 20190604, end: 20190605
  2. SERTRALINE HCL 50MG TABLET [Suspect]
     Active Substance: SERTRALINE HYDROCHLORIDE
     Indication: STRESS

REACTIONS (5)
  - Skin burning sensation [None]
  - Toothache [None]
  - Dizziness [None]
  - Eye disorder [None]
  - Tremor [None]

NARRATIVE: CASE EVENT DATE: 20190605
